FAERS Safety Report 4679232-3 (Version None)
Quarter: 2005Q2

REPORT INFORMATION
  Report Type: 
  Country: None (occurrence: None)
  Receive Date: 20050311
  Receipt Date: 20050311
  Transmission Date: 20051028
  Serious: No
  Sender: FDA-Public Use
  Company Number: None

PATIENT
  Sex: Female
  Weight: 65.7716 kg

DRUGS (1)
  1. COUMADIN [Suspect]
     Indication: CEREBROVASCULAR ACCIDENT
     Dosage: COUMADIN PER INR

REACTIONS (1)
  - INTERNATIONAL NORMALISED RATIO ABNORMAL [None]
